FAERS Safety Report 7392129-3 (Version None)
Quarter: 2011Q2

REPORT INFORMATION
  Report Type: 
  Country: None (occurrence: None)
  Receive Date: 20110404
  Receipt Date: 20110325
  Transmission Date: 20111010
  Serious: Yes (Hospitalization)
  Sender: FDA-Public Use
  Company Number: A0898679A

PATIENT
  Age: 51 Year
  Sex: Male
  Weight: 90.9 kg

DRUGS (7)
  1. AVANDIA [Suspect]
     Dosage: 8MG PER DAY
     Route: 048
     Dates: start: 20010408, end: 20080609
  2. ZESTRIL [Concomitant]
  3. FOLTX [Concomitant]
  4. GEMFIBROZIL [Concomitant]
  5. NEURONTIN [Concomitant]
  6. GLUCOTROL [Concomitant]
  7. METOPROLOL [Concomitant]

REACTIONS (3)
  - CEREBROVASCULAR ACCIDENT [None]
  - MYOCARDIAL INFARCTION [None]
  - CORONARY ARTERY DISEASE [None]
